FAERS Safety Report 9305979 (Version 6)
Quarter: 2013Q3

REPORT INFORMATION
  Report Type: Spontaneous
  Country: US (occurrence: US)
  Receive Date: 20130523
  Receipt Date: 20130701
  Transmission Date: 20140515
  Serious: Yes (Other)
  Sender: FDA-Public Use
  Company Number: US-JNJFOC-20130514177

PATIENT
  Age: 8 Year
  Sex: Female
  Weight: 20.87 kg

DRUGS (5)
  1. INFLIXIMAB [Suspect]
     Indication: CROHN^S DISEASE
     Dosage: APPROXIMATELY RECEIVED 6-10 INFUSIONS
     Route: 042
     Dates: start: 2007, end: 2008
  2. METHOTREXATE [Suspect]
     Indication: CROHN^S DISEASE
     Dosage: OFF AND ON SINCE 2007
     Route: 065
  3. HUMIRA [Suspect]
     Indication: CROHN^S DISEASE
     Route: 065
  4. AZATHIOPRINE [Suspect]
     Indication: CROHN^S DISEASE
     Dosage: 2.5-3.5 MG/KG/DAY
     Route: 048
     Dates: end: 2011
  5. PREDNISONE [Suspect]
     Indication: CROHN^S DISEASE
     Dosage: VARIES OFF AND ON
     Route: 048
     Dates: start: 2007, end: 2011

REACTIONS (3)
  - Drug level below therapeutic [Unknown]
  - Diffuse large B-cell lymphoma [Recovered/Resolved]
  - Crohn^s disease [Unknown]
